FAERS Safety Report 7148471-4 (Version None)
Quarter: 2010Q4

REPORT INFORMATION
  Report Type: 
  Country: None (occurrence: None)
  Receive Date: 20101209
  Receipt Date: 20101206
  Transmission Date: 20110411
  Serious: Yes (Death)
  Sender: FDA-Public Use
  Company Number: PHHY2010BR82682

PATIENT
  Sex: Male

DRUGS (4)
  1. DIOVAN HCT [Suspect]
     Dosage: COATED TABLET, 160/25 MG
  2. DIOVAN HCT [Suspect]
     Dosage: COATED TABLET, 160/12.5 MG
  3. DIOVAN HCT [Suspect]
     Dosage: COATED TABLET, 80/12.5 MG
  4. EXELON [Suspect]
     Dosage: 9 MG/5 CM

REACTIONS (1)
  - DEATH [None]
